FAERS Safety Report 4561289-1 (Version None)
Quarter: 2005Q1

REPORT INFORMATION
  Report Type: 
  Country: None (occurrence: None)
  Receive Date: 20050124
  Receipt Date: 20050111
  Transmission Date: 20050727
  Serious: Yes (Other)
  Sender: FDA-Public Use
  Company Number: 2004115258

PATIENT
  Age: 65 Year
  Sex: Female
  Weight: 86.1834 kg

DRUGS (11)
  1. CELEBREX [Suspect]
     Indication: ARTHRITIS
     Dosage: 200 MG (200 MG, 1 IN 1 D), ORAL
     Route: 048
     Dates: start: 19960101
  2. MULTIVITAMINS (ASCORBIC ACID/ERGOCALCIFEROL/FOLIC ACID/NICOTINAMIDE/PA [Concomitant]
  3. TAMOXIFEN (TAMOXIFEN) [Concomitant]
  4. POTASSIUM (POTASSIUM) [Concomitant]
  5. PROPACET 100 [Concomitant]
  6. MONTELUKAST SODIUM (MONTELUKAST SODIUM) [Concomitant]
  7. OLOPATADINE HYDROCHLORIDE (OLOPATADINE HYDROCHLORIDE) [Concomitant]
  8. CEVIMELINE HYDROCHLORIDE (CEVIMELINE HYDROCHLORIDE) [Concomitant]
  9. OTHER ANTIHYPERTENSIVES (OTHER ANTIHYPERTENSIVES) [Concomitant]
  10. LORATADINE [Concomitant]
  11. SALBUTAMOL (SALBUTAMOL) [Concomitant]

REACTIONS (8)
  - ARTHRALGIA [None]
  - BREAST CANCER FEMALE [None]
  - CONDITION AGGRAVATED [None]
  - FIBROMYALGIA [None]
  - MICTURITION FREQUENCY DECREASED [None]
  - RENAL IMPAIRMENT [None]
  - SJOGREN'S SYNDROME [None]
  - SYSTEMIC LUPUS ERYTHEMATOSUS [None]
